FAERS Safety Report 9506370 (Version 1)
Quarter: 2013Q1

REPORT INFORMATION
  Report Type: Spontaneous
  Country: US (occurrence: None)
  Receive Date: 20130305
  Receipt Date: 20130305
  Transmission Date: 20140127
  Serious: Yes (Other)
  Sender: FDA-Public Use
  Company Number: 163-21880-12051249

PATIENT
  Age: 75 Year
  Sex: Female
  Weight: 101.15 kg

DRUGS (3)
  1. REVLIMID (LENALIDOMIDE) (25 MILLIGRAM, CAPSULES) [Suspect]
     Indication: PLASMA CELL MYELOMA
     Dosage: X 21 DAYS
     Route: 048
     Dates: start: 201110, end: 20120423
  2. LISINOPRIL [Concomitant]
  3. METFORMIN [Concomitant]

REACTIONS (1)
  - Neutropenia [None]
